FAERS Safety Report 11710591 (Version 2)
Quarter: 2015Q4

REPORT INFORMATION
  Report Type: Spontaneous
  Country: US (occurrence: US)
  Receive Date: 20151104
  Receipt Date: 20151110
  Transmission Date: 20160304
  Serious: No
  Sender: FDA-Public Use
  Company Number: US-ELI_LILLY_AND_COMPANY-US201108006202

PATIENT
  Sex: Male

DRUGS (2)
  1. FORTEO [Suspect]
     Active Substance: TERIPARATIDE
     Dosage: 20 UG, QD
     Route: 065
  2. FORTEO [Suspect]
     Active Substance: TERIPARATIDE
     Indication: OSTEOPOROSIS
     Dosage: 20 UG, QD
     Route: 065
     Dates: start: 201101

REACTIONS (8)
  - Injection site erythema [Recovered/Resolved]
  - Head injury [Unknown]
  - Mass [Unknown]
  - Diabetes mellitus [Unknown]
  - Fall [Unknown]
  - Back injury [Unknown]
  - Contusion [Unknown]
  - Injection site pain [Recovered/Resolved]
